FAERS Safety Report 8126015-8 (Version None)
Quarter: 2012Q1

REPORT INFORMATION
  Report Type: 
  Country: None (occurrence: None)
  Receive Date: 20120209
  Receipt Date: 20120202
  Transmission Date: 20120608
  Serious: Yes (Hospitalization, Other)
  Sender: FDA-Public Use
  Company Number: PHHY2012JP009191

PATIENT
  Age: 15 Year
  Sex: Male

DRUGS (7)
  1. LAMOTRIGINE [Suspect]
     Dosage: 25 MG/DAY
  2. ZONISAMIDE [Concomitant]
  3. CLONAZEPAM [Concomitant]
  4. PHENOBARBITAL TAB [Concomitant]
  5. LAMOTRIGINE [Suspect]
     Indication: CONVULSION
     Dosage: 25 MG, ALTERNAT DAYS
  6. LAMOTRIGINE [Suspect]
     Dosage: 50 MG/DAY
  7. GABAPENTIN [Concomitant]

REACTIONS (7)
  - GRAND MAL CONVULSION [None]
  - TREMOR [None]
  - ABNORMAL BEHAVIOUR [None]
  - MIDDLE INSOMNIA [None]
  - PARASOMNIA [None]
  - INSOMNIA [None]
  - PARTIAL SEIZURES [None]
